FAERS Safety Report 14107213 (Version 2)
Quarter: 2018Q2

REPORT INFORMATION
  Report Type: Spontaneous
  Country: US (occurrence: US)
  Receive Date: 20171019
  Receipt Date: 20180403
  Transmission Date: 20180711
  Serious: No
  Sender: FDA-Public Use
  Company Number: US-PFIZER INC-2017351093

PATIENT
  Age: 81 Year
  Sex: Female

DRUGS (2)
  1. EUCRISA [Suspect]
     Active Substance: CRISABOROLE
     Dosage: UNK
  2. EUCRISA [Suspect]
     Active Substance: CRISABOROLE
     Indication: DERMATITIS
     Dosage: UNK, AS NEEDED; (APPLY TO AFFECTED AREAS TWICE DAILY )
     Dates: start: 20170826, end: 20171016

REACTIONS (2)
  - Application site pain [Recovered/Resolved]
  - Dry skin [Unknown]
